FAERS Safety Report 19524781 (Version 1)
Quarter: 2021Q3

REPORT INFORMATION
  Report Type: Spontaneous
  Country: US (occurrence: US)
  Receive Date: 20210712
  Receipt Date: 20210712
  Transmission Date: 20211014
  Serious: Yes (Other)
  Sender: FDA-Public Use
  Company Number: None

PATIENT
  Age: 72 Year
  Sex: Male
  Weight: 95.4 kg

DRUGS (9)
  1. MYRBETRIQ [Concomitant]
     Active Substance: MIRABEGRON
  2. GABAPENTIN 300MG [Concomitant]
     Active Substance: GABAPENTIN
  3. VITAMINS [Concomitant]
     Active Substance: VITAMINS
  4. KYNMOBI [Suspect]
     Active Substance: APOMORPHINE HYDROCHLORIDE
     Indication: PARKINSON^S DISEASE
     Dosage: ?          QUANTITY:1 FILM;?
     Route: 048
     Dates: start: 20210626, end: 20210707
  5. OMEPRAZOLE 20MG [Concomitant]
     Active Substance: OMEPRAZOLE
  6. TROSPIUM 20MG [Concomitant]
     Active Substance: TROSPIUM CHLORIDE
  7. VENLAFAXINE [Concomitant]
     Active Substance: VENLAFAXINE HYDROCHLORIDE
  8. SINEMET 25/100MG [Concomitant]
  9. MIRTAZAPINE 45MG [Concomitant]
     Active Substance: MIRTAZAPINE

REACTIONS (2)
  - Hyperhidrosis [None]
  - Abdominal pain upper [None]

NARRATIVE: CASE EVENT DATE: 20210707
